FAERS Safety Report 23628995 (Version 2)
Quarter: 2025Q1

REPORT INFORMATION
  Report Type: Spontaneous
  Country: US (occurrence: US)
  Receive Date: 20240313
  Receipt Date: 20250114
  Transmission Date: 20250409
  Serious: No
  Sender: COVIS PHARMA GMBH
  Company Number: US-Covis Pharma GmbH-2024COV00229

PATIENT
  Age: 68 Year
  Sex: Female
  Weight: 69 kg

DRUGS (3)
  1. RILUZOLE [Suspect]
     Active Substance: RILUZOLE
     Route: 048
  2. RELYVRIO [Suspect]
     Active Substance: SODIUM PHENYLBUTYRATE\TAURURSODIOL
     Indication: Amyotrophic lateral sclerosis
     Dosage: 1 DOSAGE FORM 1 SACHET ONCE DAILY FOR FIRST 3 WEEKS THEN ONE SACHET TWICE DAILY, 2/DAYS
     Route: 048
     Dates: start: 20230506
  3. RELYVRIO [Suspect]
     Active Substance: SODIUM PHENYLBUTYRATE\TAURURSODIOL
     Dosage: 1 DOSAGE FORM 1 SACHET ONCE DAILY FOR FIRST 3 WEEKS THEN ONE SACHET TWICE DAILY, 2/DAYS
     Route: 048
     Dates: start: 20230506

REACTIONS (9)
  - Dyspepsia [Unknown]
  - Diarrhoea [Recovering/Resolving]
  - Headache [Unknown]
  - Nausea [Unknown]
  - Hepatic enzyme increased [Unknown]
  - Abdominal pain upper [Unknown]
  - Abdominal discomfort [Unknown]
  - Intentional dose omission [Unknown]
  - Product use complaint [Unknown]

NARRATIVE: CASE EVENT DATE: 20230505
